FAERS Safety Report 24626980 (Version 1)
Quarter: 2024Q4

REPORT INFORMATION
  Report Type: Spontaneous
  Country: US (occurrence: US)
  Receive Date: 20241115
  Receipt Date: 20241115
  Transmission Date: 20250115
  Serious: Yes (Other)
  Sender: GE HEALTHCARE
  Company Number: US-GE HEALTHCARE-2024CSU013044

PATIENT
  Age: 75 Year
  Sex: Female
  Weight: 74.83 kg

DRUGS (1)
  1. OMNIPAQUE [Suspect]
     Active Substance: IOHEXOL
     Indication: Computerised tomogram intestine
     Dosage: 100 ML, TOTAL
     Route: 042
     Dates: start: 20241108, end: 20241108

REACTIONS (5)
  - Mental status changes [Unknown]
  - Hypotension [Unknown]
  - Asthenia [Unknown]
  - Contrast media reaction [Unknown]
  - Nausea [Unknown]

NARRATIVE: CASE EVENT DATE: 20241108
